FAERS Safety Report 8282167-0 (Version None)
Quarter: 2012Q2

REPORT INFORMATION
  Report Type: 
  Country: None (occurrence: None)
  Receive Date: 20120413
  Receipt Date: 20120406
  Transmission Date: 20120825
  Serious: Yes (Other)
  Sender: FDA-Public Use
  Company Number: PHHY2012US030644

PATIENT
  Age: 71 Year
  Sex: Female

DRUGS (4)
  1. DIGOXIN [Concomitant]
     Dosage: 0.125 MG DAILY
  2. METOPROLOL TARTRATE [Suspect]
     Dosage: 75 MG, BID
  3. PROPAFENONE HCL [Concomitant]
     Dosage: 225 MG, TID
  4. METOPROLOL TARTRATE [Suspect]
     Dosage: 100 MG, BID

REACTIONS (3)
  - ATRIOVENTRICULAR BLOCK COMPLETE [None]
  - UNRESPONSIVE TO STIMULI [None]
  - BRADYCARDIA [None]
